FAERS Safety Report 5072916-7 (Version None)
Quarter: 2006Q3

REPORT INFORMATION
  Report Type: 
  Country: None (occurrence: None)
  Receive Date: 20060802
  Receipt Date: 20060724
  Transmission Date: 20061208
  Serious: Yes (Death)
  Sender: FDA-Public Use
  Company Number: OMPQ-NO-0607L-1230

PATIENT
  Age: 49 Year
  Sex: Male

DRUGS (1)
  1. OMNIPAQUE 140 [Suspect]
     Indication: PULMONARY OEDEMA
     Dosage: 100 ML, I.V.
     Route: 042

REACTIONS (6)
  - ACUTE RESPIRATORY FAILURE [None]
  - CONGESTIVE CARDIOMYOPATHY [None]
  - MYOCARDIAL INFARCTION [None]
  - POST PROCEDURAL COMPLICATION [None]
  - PULMONARY OEDEMA [None]
  - VENTRICULAR FIBRILLATION [None]
